FAERS Safety Report 4819044-0 (Version None)
Quarter: 2005Q4

REPORT INFORMATION
  Report Type: 
  Country: None (occurrence: None)
  Receive Date: 20051101
  Receipt Date: 20051021
  Transmission Date: 20060501
  Serious: Yes (Life-Threatening, Disabling)
  Sender: FDA-Public Use
  Company Number: 218818

PATIENT
  Age: 61 Year
  Sex: Female

DRUGS (5)
  1. RITUXAN (RITUXIMAB) CONC FOR SOLUTION FOR INFUSION [Suspect]
     Indication: LYMPHOMA
     Dosage: 500 MG,  UNK, INTRAVENOUS
     Route: 042
     Dates: start: 20050208, end: 20050613
  2. DOXORUBICIN HYDROCHLORIDE [Suspect]
     Indication: LYMPHOMA
     Dosage: 64 MG, UNK; INTRAVENOUS
     Route: 042
     Dates: start: 20050210, end: 20050615
  3. CYCLOPHOSPHAMIDE [Suspect]
     Indication: LYMPHOMA
     Dosage: 960 MG, UNK, INTRAVENOUS
     Route: 042
     Dates: start: 20050210, end: 20050615
  4. ONCOVIN [Suspect]
     Indication: LYMPHOMA
     Dosage: 0.9 MG, UNK, INTRAVENOUS; 1.8 MG,
     Route: 042
     Dates: start: 20050210, end: 20050615
  5. PREDNISONE [Suspect]
     Indication: LYMPHOMA
     Dosage: 100 MG, PRN; ORAL
     Route: 048
     Dates: start: 20050210, end: 20050615

REACTIONS (4)
  - INTESTINAL PERFORATION [None]
  - PERITONITIS [None]
  - SEPTIC SHOCK [None]
  - WHITE BLOOD CELL COUNT DECREASED [None]
